APPROVED DRUG PRODUCT: PERINDOPRIL ERBUMINE
Active Ingredient: PERINDOPRIL ERBUMINE
Strength: 4MG
Dosage Form/Route: TABLET;ORAL
Application: A078138 | Product #002
Applicant: ANI PHARMACEUTICALS INC
Approved: Nov 10, 2009 | RLD: No | RS: No | Type: DISCN